FAERS Safety Report 8337938-9 (Version None)
Quarter: 2012Q2

REPORT INFORMATION
  Report Type: 
  Country: None (occurrence: None)
  Receive Date: 20120504
  Receipt Date: 20120427
  Transmission Date: 20120825
  Serious: No
  Sender: FDA-Public Use
  Company Number: JP-EISAI INC-E7389-02150-SPO-JP

PATIENT
  Age: 49 Year
  Sex: Female

DRUGS (4)
  1. ZOLPIDEM [Concomitant]
     Route: 048
     Dates: start: 20120215, end: 20120303
  2. HALAVEN [Suspect]
     Route: 041
     Dates: start: 20120216, end: 20120223
  3. HALAVEN [Suspect]
     Route: 041
     Dates: start: 20120315
  4. OXYCONTIN [Concomitant]
     Route: 048
     Dates: start: 20100101, end: 20120301

REACTIONS (1)
  - NO ADVERSE EVENT [None]
